FAERS Safety Report 6401876-9 (Version None)
Quarter: 2009Q4

REPORT INFORMATION
  Report Type: 
  Country: None (occurrence: None)
  Receive Date: 20091015
  Receipt Date: 20091006
  Transmission Date: 20100525
  Serious: Yes (Other)
  Sender: FDA-Public Use
  Company Number: BR-ASTRAZENECA-2009SE18631

PATIENT
  Age: 80 Year
  Sex: Female

DRUGS (3)
  1. ATACAND [Suspect]
     Indication: HYPERTENSION
     Route: 048
     Dates: start: 20050101
  2. OMEPRAZOLE [Suspect]
     Indication: ABDOMINAL PAIN UPPER
     Dosage: DAILY
     Route: 048
     Dates: start: 20060101
  3. PLAVIX [Concomitant]
     Indication: PLATELET AGGREGATION INHIBITION
     Dosage: DAILY
     Route: 048
     Dates: start: 20080101

REACTIONS (3)
  - ABDOMINAL PAIN UPPER [None]
  - DRUG INEFFECTIVE [None]
  - GASTROINTESTINAL PAIN [None]
